FAERS Safety Report 6818287-4 (Version None)
Quarter: 2010Q3

REPORT INFORMATION
  Report Type: 
  Country: None (occurrence: None)
  Receive Date: 20100706
  Receipt Date: 20070815
  Transmission Date: 20110219
  Serious: No
  Sender: FDA-Public Use
  Company Number: US-PFIZER INC-2007068770

PATIENT
  Age: 3 Year
  Sex: Female

DRUGS (2)
  1. ZITHROMAX [Suspect]
     Route: 048
  2. ACYCLOVIR [Concomitant]

REACTIONS (3)
  - BODY TEMPERATURE DECREASED [None]
  - COLD SWEAT [None]
  - HYPERHIDROSIS [None]
